FAERS Safety Report 4804313-0 (Version None)
Quarter: 2005Q4

REPORT INFORMATION
  Report Type: 
  Country: None (occurrence: None)
  Receive Date: 20051017
  Receipt Date: 20030901
  Transmission Date: 20060501
  Serious: Yes (Other)
  Sender: FDA-Public Use
  Company Number: CHNY2003AU02347

PATIENT
  Age: 35 Year
  Sex: Female

DRUGS (1)
  1. NICOTINE                              CHEWABLE GUM [Suspect]
     Dosage: 4 MG, BUCCAL
     Route: 002

REACTIONS (3)
  - DYSPNOEA [None]
  - PHARYNGEAL OEDEMA [None]
  - PHARYNGOLARYNGEAL PAIN [None]
